FAERS Safety Report 21169737 (Version 1)
Quarter: 2022Q3

REPORT INFORMATION
  Report Type: Spontaneous
  Country: CA (occurrence: CA)
  Receive Date: 20220804
  Receipt Date: 20220804
  Transmission Date: 20221026
  Serious: Yes (Death, Hospitalization, Other)
  Sender: FDA-Public Use
  Company Number: CA-SAMSUNG BIOEPIS-SB-2022-18873

PATIENT
  Age: 79 Year
  Sex: Female
  Weight: 64 kg

DRUGS (3)
  1. INFLIXIMAB [Suspect]
     Active Substance: INFLIXIMAB
     Indication: Crohn^s disease
     Route: 042
  2. ASACOL [Concomitant]
     Active Substance: MESALAMINE
     Indication: Product used for unknown indication
     Dosage: UNKNOWN, ENTERIC COATED
     Route: 065
  3. PREDNISONE [Concomitant]
     Active Substance: PREDNISONE
     Indication: Product used for unknown indication
     Dosage: UNKNOWN
     Route: 065

REACTIONS (16)
  - Death [Fatal]
  - Abdominal distension [Fatal]
  - Arthralgia [Fatal]
  - Asthenia [Fatal]
  - COVID-19 [Fatal]
  - Condition aggravated [Fatal]
  - Fluid retention [Fatal]
  - Influenza [Fatal]
  - Infusion site extravasation [Fatal]
  - Infusion site swelling [Fatal]
  - Mobility decreased [Fatal]
  - Peripheral coldness [Fatal]
  - Peripheral swelling [Fatal]
  - Weight increased [Fatal]
  - Drug ineffective [Fatal]
  - Off label use [Fatal]
